FAERS Safety Report 8777729 (Version 1)
Quarter: 2012Q4

REPORT INFORMATION
  Report Type: 
  Country: US (occurrence: US)
  Receive Date: 20120912
  Receipt Date: 20120912
  Transmission Date: 20130627
  Serious: No
  Sender: FDA-Public Use
  Company Number: US-VERTEX PHARMACEUTICAL INC.-AE-2012-004155

PATIENT
  Age: 58 Year
  Sex: Male

DRUGS (13)
  1. INCIVEK [Suspect]
     Indication: HEPATITIS C
     Route: 048
     Dates: start: 20120309, end: 20120320
  2. PEGASYS [Concomitant]
     Indication: HEPATITIS C
     Dates: start: 20120309
  3. RIBAVIRIN [Concomitant]
     Indication: HEPATITIS C
     Dates: start: 20120309
  4. AMLODIPINE [Concomitant]
  5. ASPIRIN [Concomitant]
  6. LOSARTAN [Concomitant]
  7. MULTIVITAMIN [Concomitant]
  8. MILK THISTLE [Concomitant]
  9. ZYRTEC [Concomitant]
  10. IBUPROFEN [Concomitant]
  11. PROMETHAZINE [Concomitant]
  12. ANUSOL HC [Concomitant]
  13. RESTORIL [Concomitant]

REACTIONS (2)
  - Rash generalised [Not Recovered/Not Resolved]
  - Pruritus [Unknown]
